FAERS Safety Report 10031669 (Version 2)
Quarter: 2014Q1

REPORT INFORMATION
  Report Type: Spontaneous
  Country: US (occurrence: US)
  Receive Date: 20140324
  Receipt Date: 20140331
  Transmission Date: 20141002
  Serious: No
  Sender: FDA-Public Use
  Company Number: US-PFIZER INC-2014083518

PATIENT
  Age: 35 Year
  Sex: Male
  Weight: 74.83 kg

DRUGS (1)
  1. CELEBREX [Suspect]
     Indication: ARTHRITIS
     Dosage: 200 MG, DAILY
     Dates: start: 2013

REACTIONS (2)
  - Nasopharyngitis [Unknown]
  - Pain [Unknown]
